FAERS Safety Report 4885327-1 (Version None)
Quarter: 2006Q1

REPORT INFORMATION
  Report Type: 
  Country: None (occurrence: None)
  Receive Date: 20060119
  Receipt Date: 20060109
  Transmission Date: 20060701
  Serious: Yes (Death, Hospitalization)
  Sender: FDA-Public Use
  Company Number: US-BRISTOL-MYERS SQUIBB COMPANY-13240585

PATIENT
  Age: 80 Year
  Sex: Female
  Weight: 50 kg

DRUGS (5)
  1. ABILIFY [Suspect]
     Indication: SCHIZOPHRENIA
     Dosage: 21-NOV-2005 DECREASED TO 10 MG ONCE DAILY
     Route: 048
     Dates: start: 20051101, end: 20051126
  2. ABILIFY [Suspect]
     Indication: BIPOLAR DISORDER
     Dosage: 21-NOV-2005 DECREASED TO 10 MG ONCE DAILY
     Route: 048
     Dates: start: 20051101, end: 20051126
  3. TAMOXIFEN CITRATE [Concomitant]
     Indication: BREAST CANCER
  4. KLONOPIN [Concomitant]
  5. DEPAKOTE [Concomitant]
     Dates: start: 20051121

REACTIONS (6)
  - DYSPHAGIA [None]
  - DYSPHASIA [None]
  - MYASTHENIA GRAVIS [None]
  - PAIN [None]
  - RESTLESSNESS [None]
  - TREMOR [None]
